FAERS Safety Report 5967992-0 (Version None)
Quarter: 2008Q4

REPORT INFORMATION
  Report Type: 
  Country: None (occurrence: None)
  Receive Date: 20081121
  Receipt Date: 20081118
  Transmission Date: 20090506
  Serious: Yes (Death)
  Sender: FDA-Public Use
  Company Number: 2008JP005435

PATIENT
  Age: 68 Year
  Sex: Male

DRUGS (3)
  1. PROGRAF [Suspect]
     Indication: RENAL TRANSPLANT
  2. MYCOPHENOLATE MOFETIL [Concomitant]
  3. STEROID FORMULATION [Concomitant]

REACTIONS (2)
  - DUODENAL PERFORATION [None]
  - PNEUMOCYSTIS JIROVECI PNEUMONIA [None]
